FAERS Safety Report 5850835-3 (Version None)
Quarter: 2008Q3

REPORT INFORMATION
  Report Type: 
  Country: None (occurrence: None)
  Receive Date: 20080818
  Receipt Date: 20080807
  Transmission Date: 20090109
  Serious: Yes (Hospitalization)
  Sender: FDA-Public Use
  Company Number: 2008BI017857

PATIENT
  Sex: Male

DRUGS (1)
  1. TYSABRI [Suspect]
     Indication: MULTIPLE SCLEROSIS
     Dosage: 300 MG; QM; IV
     Dates: start: 20071213

REACTIONS (4)
  - CELLULITIS [None]
  - CLOSTRIDIAL INFECTION [None]
  - MULTIPLE SCLEROSIS RELAPSE [None]
  - NECROTISING FASCIITIS [None]
